FAERS Safety Report 10262125 (Version 2)
Quarter: 2014Q3

REPORT INFORMATION
  Report Type: Spontaneous
  Country: US (occurrence: US)
  Receive Date: 20140626
  Receipt Date: 20140828
  Transmission Date: 20150326
  Serious: Yes (Hospitalization)
  Sender: FDA-Public Use
  Company Number: US-GLAXOSMITHKLINE-A1077852A

PATIENT
  Sex: Female

DRUGS (5)
  1. DEPO-MEDROL [Concomitant]
     Active Substance: METHYLPREDNISOLONE ACETATE
  2. DICLOFENAC [Concomitant]
     Active Substance: DICLOFENAC
  3. BENADRYL [Concomitant]
     Active Substance: DIPHENHYDRAMINE HYDROCHLORIDE
  4. GABAPENTIN. [Concomitant]
     Active Substance: GABAPENTIN
  5. ADVAIR HFA [Suspect]
     Active Substance: FLUTICASONE PROPIONATE\SALMETEROL XINAFOATE
     Indication: CHRONIC OBSTRUCTIVE PULMONARY DISEASE
     Dosage: 1PUFF PER DAY
     Route: 055
     Dates: start: 2004

REACTIONS (7)
  - Arthritis [Unknown]
  - Synovial cyst [Unknown]
  - Drug administration error [Unknown]
  - Chronic obstructive pulmonary disease [Unknown]
  - Knee arthroplasty [Unknown]
  - Staphylococcal infection [Unknown]
  - Finger amputation [Unknown]
